FAERS Safety Report 7752378-9 (Version None)
Quarter: 2011Q3

REPORT INFORMATION
  Report Type: 
  Country: None (occurrence: None)
  Receive Date: 20110913
  Receipt Date: 20110902
  Transmission Date: 20111222
  Serious: Yes (Hospitalization, Other)
  Sender: FDA-Public Use
  Company Number: 2009-196667-NL

PATIENT
  Age: 27 Year
  Sex: Female
  Weight: 52.1637 kg

DRUGS (2)
  1. NUVARING [Suspect]
     Indication: CONTRACEPTION
     Dates: start: 20040506, end: 20061013
  2. NUVARING [Suspect]
     Indication: LIBIDO DECREASED
     Dates: start: 20040506, end: 20061013

REACTIONS (33)
  - THROMBOSIS [None]
  - DRUG DEPENDENCE [None]
  - VOMITING [None]
  - WHITE BLOOD CELL COUNT INCREASED [None]
  - DRY MOUTH [None]
  - ABDOMINAL DISCOMFORT [None]
  - CEREBRAL VENOUS THROMBOSIS [None]
  - COGNITIVE DISORDER [None]
  - GRIMACING [None]
  - CEREBROVASCULAR ACCIDENT [None]
  - DIZZINESS [None]
  - AMNESIA [None]
  - ABDOMINAL PAIN [None]
  - COAGULOPATHY [None]
  - DEEP VEIN THROMBOSIS [None]
  - INTERNATIONAL NORMALISED RATIO INCREASED [None]
  - CEREBRAL PALSY [None]
  - NAUSEA [None]
  - MIGRAINE [None]
  - FAECAL INCONTINENCE [None]
  - CAVERNOUS SINUS THROMBOSIS [None]
  - HAEMATOCRIT DECREASED [None]
  - CEREBRAL HAEMORRHAGE [None]
  - SUBARACHNOID HAEMORRHAGE [None]
  - GASTROENTERITIS [None]
  - GASTROENTERITIS VIRAL [None]
  - HYPOKALAEMIA [None]
  - URINARY TRACT INFECTION [None]
  - DEHYDRATION [None]
  - HEADACHE [None]
  - DISORIENTATION [None]
  - FACTOR V DEFICIENCY [None]
  - DIARRHOEA [None]
